FAERS Safety Report 6919099-3 (Version None)
Quarter: 2010Q3

REPORT INFORMATION
  Report Type: 
  Country: None (occurrence: None)
  Receive Date: 20100811
  Receipt Date: 20100809
  Transmission Date: 20110219
  Serious: Yes (Death)
  Sender: FDA-Public Use
  Company Number: JP-SANOFI-AVENTIS-2010SA047340

PATIENT
  Age: 81 Year
  Sex: Female
  Weight: 27 kg

DRUGS (1)
  1. LASIX [Suspect]
     Indication: PLEURAL EFFUSION
     Dosage: DOSAGE UNKNOWN
     Route: 048

REACTIONS (1)
  - DEATH [None]
